FAERS Safety Report 22040913 (Version 1)
Quarter: 2023Q1

REPORT INFORMATION
  Report Type: Spontaneous
  Country: US (occurrence: US)
  Receive Date: 20230227
  Receipt Date: 20230227
  Transmission Date: 20230418
  Serious: Yes (Hospitalization, Other)
  Sender: FDA-Public Use
  Company Number: US-PFIZER INC-PV202300033675

PATIENT
  Age: 24 Year
  Sex: Female

DRUGS (1)
  1. RITUXIMAB [Suspect]
     Active Substance: RITUXIMAB
     Indication: Lymphoproliferative disorder
     Dosage: UNK, WEEKLY(FOUR INTENDED DOSES)

REACTIONS (6)
  - Drug ineffective for unapproved indication [Unknown]
  - Anaemia [Recovered/Resolved]
  - Duodenal ulcer [Unknown]
  - Gastrointestinal haemorrhage [Recovered/Resolved]
  - Disease recurrence [Recovered/Resolved]
  - Off label use [Unknown]
